FAERS Safety Report 16116305 (Version 1)
Quarter: 2019Q1

REPORT INFORMATION
  Report Type: Spontaneous
  Country: US (occurrence: US)
  Receive Date: 20190220
  Receipt Date: 20190220
  Transmission Date: 20190418
  Serious: Yes (Life-Threatening, Hospitalization)
  Sender: FDA-Public Use
  Company Number: None

PATIENT
  Age: 54 Year
  Sex: Male
  Weight: 89 kg

DRUGS (1)
  1. IPILIMUMAB [Suspect]
     Active Substance: IPILIMUMAB
     Indication: MALIGNANT MELANOMA
     Dates: start: 20171101, end: 20181102

REACTIONS (6)
  - Hypophysitis [None]
  - Hypotension [None]
  - Metastatic malignant melanoma [None]
  - Hypothyroidism [None]
  - Hypogonadism [None]
  - Hypertension [None]

NARRATIVE: CASE EVENT DATE: 20181102
